FAERS Safety Report 25768816 (Version 2)
Quarter: 2025Q3

REPORT INFORMATION
  Report Type: Spontaneous
  Country: CN (occurrence: CN)
  Receive Date: 20250905
  Receipt Date: 20250919
  Transmission Date: 20251021
  Serious: Yes (Death, Other)
  Sender: MERCK SHARP & DOHME LLC
  Company Number: CN-009507513-2326087

PATIENT
  Age: 45 Year
  Sex: Male

DRUGS (3)
  1. TEMOZOLOMIDE [Suspect]
     Active Substance: TEMOZOLOMIDE
     Indication: Glioblastoma multiforme
     Route: 048
     Dates: start: 20210825, end: 20211005
  2. TEMOZOLOMIDE [Suspect]
     Active Substance: TEMOZOLOMIDE
     Indication: Glioblastoma multiforme
     Route: 048
     Dates: start: 20211103
  3. TEMOZOLOMIDE [Suspect]
     Active Substance: TEMOZOLOMIDE
     Indication: Glioblastoma multiforme
     Route: 048
     Dates: end: 20220419

REACTIONS (2)
  - Metastases to spinal cord [Fatal]
  - Recurrent cancer [Unknown]

NARRATIVE: CASE EVENT DATE: 20230301
